FAERS Safety Report 7399291-7 (Version None)
Quarter: 2011Q1

REPORT INFORMATION
  Report Type: 
  Country: None (occurrence: None)
  Receive Date: 20110328
  Receipt Date: 20110310
  Transmission Date: 20110831
  Serious: Yes (Hospitalization)
  Sender: FDA-Public Use
  Company Number: 029036

PATIENT
  Sex: Female
  Weight: 49.7 kg

DRUGS (1)
  1. LACOSAMIDE [Suspect]
     Indication: EPILEPSY
     Dosage: 500 MG, ORAL
     Route: 048
     Dates: start: 20100428

REACTIONS (2)
  - ASTHENIA [None]
  - HEART RATE DECREASED [None]
